FAERS Safety Report 23748707 (Version 1)
Quarter: 2024Q2

REPORT INFORMATION
  Report Type: Spontaneous
  Country: US (occurrence: US)
  Receive Date: 20240416
  Receipt Date: 20240416
  Transmission Date: 20240716
  Serious: No
  Sender: FDA-Public Use
  Company Number: US-BRISTOL-MYERS SQUIBB COMPANY-2024-059665

PATIENT
  Age: 33 Year
  Sex: Male

DRUGS (2)
  1. REVLIMID [Suspect]
     Active Substance: LENALIDOMIDE
     Indication: Plasma cell myeloma
     Dosage: FREQUENCY: DAILY FOR 2 DAYS ON, AND 1 DAY OFF, FOR 21 DAYS. THEN TAKE 7 DAYSOFF
     Route: 048
     Dates: start: 202305
  2. REVLIMID [Suspect]
     Active Substance: LENALIDOMIDE
     Indication: Plasmacytoma

REACTIONS (2)
  - Rash [Unknown]
  - Off label use [Unknown]
